FAERS Safety Report 8607656-8 (Version None)
Quarter: 2012Q3

REPORT INFORMATION
  Report Type: 
  Country: None (occurrence: None)
  Receive Date: 20120809
  Receipt Date: 20120809
  Transmission Date: 20120928
  Serious: Yes (Life-Threatening, Hospitalization)
  Sender: FDA-Public Use
  Company Number: None

PATIENT
  Age: 65 Year
  Sex: Male
  Weight: 83.6 kg

DRUGS (2)
  1. PIPERACILLIN AND TAZOBACTAM [Suspect]
     Dosage: 3.75 GM ONCE IV
     Route: 042
     Dates: start: 20111028, end: 20111028
  2. CEFAZOLIN [Suspect]
     Dosage: 2 GM ONCE IV
     Route: 042
     Dates: start: 20111028, end: 20111028

REACTIONS (1)
  - ANAPHYLACTIC REACTION [None]
